FAERS Safety Report 6357048-X (Version None)
Quarter: 2009Q3

REPORT INFORMATION
  Report Type: 
  Country: None (occurrence: None)
  Receive Date: 20090915
  Receipt Date: 20090904
  Transmission Date: 20100115
  Serious: Yes (Hospitalization)
  Sender: FDA-Public Use
  Company Number: IE-GENENTECH-283876

PATIENT
  Sex: Male

DRUGS (2)
  1. XOLAIR [Suspect]
     Indication: ASTHMA
  2. XOLAIR [Suspect]
     Dosage: 300 MG, UNK

REACTIONS (1)
  - ASTHMA [None]
